FAERS Safety Report 18558157 (Version 1)
Quarter: 2020Q4

REPORT INFORMATION
  Report Type: Spontaneous
  Country: NL (occurrence: NL)
  Receive Date: 20201130
  Receipt Date: 20201130
  Transmission Date: 20210114
  Serious: No
  Sender: FDA-Public Use
  Company Number: NL-ALKEM LABORATORIES LIMITED-NL-ALKEM-2020-06669

PATIENT
  Sex: Male

DRUGS (2)
  1. OXYCODONE HYDROCHLORIDE. [Suspect]
     Active Substance: OXYCODONE HYDROCHLORIDE
     Indication: METASTASIS
     Dosage: 5 MILLIGRAM, QD, UP TO SIX TIMES
     Route: 065
  2. FENTANYL. [Suspect]
     Active Substance: FENTANYL
     Indication: METASTASIS
     Route: 062

REACTIONS (2)
  - Confusional state [Unknown]
  - Apraxia [Unknown]
